FAERS Safety Report 7569328-0 (Version None)
Quarter: 2011Q2

REPORT INFORMATION
  Report Type: 
  Country: None (occurrence: None)
  Receive Date: 20110623
  Receipt Date: 20110621
  Transmission Date: 20111010
  Serious: Yes (Hospitalization, Other)
  Sender: FDA-Public Use
  Company Number: NZ-ABBOTT-11P-118-0729661-00

PATIENT
  Sex: Male
  Weight: 112 kg

DRUGS (4)
  1. INFLIXIMAB [Suspect]
     Dates: start: 20100701
  2. HUMIRA [Suspect]
     Indication: PRODUCT USED FOR UNKNOWN INDICATION
     Dates: start: 20091101
  3. INFLIXIMAB [Suspect]
     Indication: PRODUCT USED FOR UNKNOWN INDICATION
     Dates: start: 20080101
  4. HUMIRA [Suspect]
     Dates: start: 20100601

REACTIONS (5)
  - EAR DISCOMFORT [None]
  - DEAFNESS [None]
  - TINNITUS [None]
  - VERTIGO [None]
  - HOSPITALISATION [None]
